FAERS Safety Report 21270528 (Version 1)
Quarter: 2022Q3

REPORT INFORMATION
  Report Type: Spontaneous
  Country: NO (occurrence: NO)
  Receive Date: 20220830
  Receipt Date: 20220830
  Transmission Date: 20221027
  Serious: Yes (Other)
  Sender: FDA-Public Use
  Company Number: NO-ENDO PHARMACEUTICALS INC-2022-005099

PATIENT
  Age: 67 Year
  Sex: Male

DRUGS (8)
  1. ADRENALIN [Suspect]
     Active Substance: EPINEPHRINE
     Indication: Anaesthesia eye
     Dosage: UNK UNKNOWN, UNKNOWN (1:200,000) (RIGHT EYE)
     Route: 056
  2. ADRENALIN [Suspect]
     Active Substance: EPINEPHRINE
     Dosage: UNK UNKNOWN, UNKNOWN (1:200,000) (LEFT EYE, 3 MONTHS PRIOR)
     Route: 056
  3. XYLOCAINE [Suspect]
     Active Substance: LIDOCAINE HYDROCHLORIDE
     Indication: Anaesthesia eye
     Dosage: UNK UNKNOWN, UNKNOWN (RIGHT EYE)
     Route: 056
  4. XYLOCAINE [Suspect]
     Active Substance: LIDOCAINE HYDROCHLORIDE
     Dosage: UNK UNKNOWN, UNKNOWN (LFET EYE, 3 MONTHS PRIOR)
     Route: 056
  5. BUPIVACAINE [Suspect]
     Active Substance: BUPIVACAINE
     Indication: Anaesthesia eye
     Dosage: UNK UNKNOWN, UNKNOWN (RIGHT EYE)
     Route: 056
  6. BUPIVACAINE [Suspect]
     Active Substance: BUPIVACAINE
     Dosage: UNK UNKNOWN, UNKNOWN (LEFT EYE, 3 MONTHS PRIOR)
     Route: 056
  7. ASPIRIN [Concomitant]
     Active Substance: ASPIRIN
     Indication: Product used for unknown indication
     Dosage: 75 MG, OD
     Route: 065
  8. ATORVASTATIN [Concomitant]
     Active Substance: ATORVASTATIN
     Indication: Product used for unknown indication
     Dosage: 40 MG, OD
     Route: 065

REACTIONS (2)
  - Retinal artery occlusion [Recovering/Resolving]
  - Off label use [Recovered/Resolved]
